FAERS Safety Report 14672968 (Version 6)
Quarter: 2022Q1

REPORT INFORMATION
  Report Type: Spontaneous
  Country: PT (occurrence: PT)
  Receive Date: 20180323
  Receipt Date: 20220314
  Transmission Date: 20220423
  Serious: Yes (Hospitalization, Other)
  Sender: FDA-Public Use
  Company Number: None

PATIENT
  Age: 8 Year
  Sex: Female

DRUGS (5)
  1. ACETAMINOPHEN [Suspect]
     Active Substance: ACETAMINOPHEN
     Indication: Oropharyngeal pain
     Dosage: UNK
     Route: 065
  2. ACETAMINOPHEN [Suspect]
     Active Substance: ACETAMINOPHEN
     Indication: Rhinorrhoea
  3. NIMESULIDE [Suspect]
     Active Substance: NIMESULIDE
     Indication: Oropharyngeal pain
     Dosage: UNK
     Route: 065
  4. NIMESULIDE [Suspect]
     Active Substance: NIMESULIDE
     Indication: Rhinorrhoea
  5. IRON [Concomitant]
     Active Substance: IRON
     Indication: Iron deficiency anaemia
     Dosage: UNK
     Route: 065

REACTIONS (6)
  - Obliterative bronchiolitis [Recovered/Resolved]
  - Overlap syndrome [Recovered/Resolved]
  - Stevens-Johnson syndrome [Recovered/Resolved with Sequelae]
  - Toxic epidermal necrolysis [Recovered/Resolved with Sequelae]
  - Pancreatitis acute [Recovered/Resolved]
  - Off label use [Recovered/Resolved with Sequelae]
